FAERS Safety Report 7434042-9 (Version None)
Quarter: 2011Q2

REPORT INFORMATION
  Report Type: 
  Country: None (occurrence: None)
  Receive Date: 20110421
  Receipt Date: 20110421
  Transmission Date: 20111010
  Serious: Yes (Other)
  Sender: FDA-Public Use
  Company Number: None

PATIENT
  Sex: Male
  Weight: 95.2554 kg

DRUGS (1)
  1. AZITHROMYCIN [Suspect]
     Indication: PNEUMONIA
     Dosage: 250MG DAILY PO
     Route: 048
     Dates: start: 20110418, end: 20110420

REACTIONS (3)
  - PRODUCT PACKAGING ISSUE [None]
  - WRONG TECHNIQUE IN DRUG USAGE PROCESS [None]
  - INCORRECT DOSE ADMINISTERED [None]
